FAERS Safety Report 7166907-X (Version None)
Quarter: 2010Q4

REPORT INFORMATION
  Report Type: 
  Country: None (occurrence: None)
  Receive Date: 20101213
  Receipt Date: 20101213
  Transmission Date: 20110411
  Serious: Yes (Other)
  Sender: FDA-Public Use
  Company Number: None

PATIENT
  Sex: Female
  Weight: 69.8539 kg

DRUGS (1)
  1. ORTHO TRI-CYCLEN [Suspect]
     Indication: CONTRACEPTION
     Dosage: ONE DAILY PO
     Route: 048

REACTIONS (3)
  - CONSTIPATION [None]
  - FREQUENT BOWEL MOVEMENTS [None]
  - ILEUS PARALYTIC [None]
